FAERS Safety Report 16684747 (Version 5)
Quarter: 2019Q4

REPORT INFORMATION
  Report Type: Report from Study
  Country: US (occurrence: US)
  Receive Date: 20190808
  Receipt Date: 20191211
  Transmission Date: 20200122
  Serious: Yes (Hospitalization, Other)
  Sender: FDA-Public Use
  Company Number: US-MALLINCKRODT-T201903605

PATIENT
  Sex: Female

DRUGS (5)
  1. REPOSITORY CORTICOTROPIN INJECTION [Suspect]
     Active Substance: CORTICOTROPIN
     Dosage: 40 UNITS/0.5 ML, TWO TIMES PER WEEK (TUESDAY/FRIDAY)
     Route: 058
  2. METHOTREXATE. [Concomitant]
     Active Substance: METHOTREXATE
     Indication: PRODUCT USED FOR UNKNOWN INDICATION
     Dosage: UNK
     Route: 065
  3. REPOSITORY CORTICOTROPIN INJECTION [Suspect]
     Active Substance: CORTICOTROPIN
     Dosage: 40 UNITS/0.5 ML, THREE TIMES A WEEK (MONDAY/WEDNESDAY/FRIDAY)
     Route: 058
     Dates: start: 201908
  4. REPOSITORY CORTICOTROPIN INJECTION [Suspect]
     Active Substance: CORTICOTROPIN
     Indication: PSORIATIC ARTHROPATHY
     Dosage: 40 UNITS/0.5 ML, THREE TIMES A WEEK
     Route: 058
     Dates: start: 20180111
  5. PREDNISONE. [Concomitant]
     Active Substance: PREDNISONE
     Indication: PRODUCT USED FOR UNKNOWN INDICATION
     Route: 065

REACTIONS (11)
  - Atrial fibrillation [Unknown]
  - Gastrointestinal disorder [Unknown]
  - Mobility decreased [Not Recovered/Not Resolved]
  - Blood pressure abnormal [Unknown]
  - Chest pain [Unknown]
  - Inflammation [Not Recovered/Not Resolved]
  - White blood cell count abnormal [Unknown]
  - Back pain [Not Recovered/Not Resolved]
  - Overweight [Unknown]
  - Glycosylated haemoglobin increased [Not Recovered/Not Resolved]
  - Pain [Unknown]

NARRATIVE: CASE EVENT DATE: 2019
